FAERS Safety Report 7484070-2 (Version None)
Quarter: 2011Q2

REPORT INFORMATION
  Report Type: 
  Country: None (occurrence: None)
  Receive Date: 20110517
  Receipt Date: 20110509
  Transmission Date: 20111010
  Serious: Yes (Death)
  Sender: FDA-Public Use
  Company Number: GB-TEVA-281546ISR

PATIENT
  Age: 65 Year
  Sex: Male
  Weight: 69.2 kg

DRUGS (1)
  1. TRIMETHOPRIM [Suspect]
     Indication: CYSTITIS KLEBSIELLA
     Dosage: 400 MILLIGRAM;
     Route: 048
     Dates: start: 20110321, end: 20110326

REACTIONS (2)
  - TOXIC EPIDERMAL NECROLYSIS [None]
  - PERITONITIS BACTERIAL [None]
